FAERS Safety Report 4355259-6 (Version None)
Quarter: 2004Q2

REPORT INFORMATION
  Report Type: 
  Country: None (occurrence: None)
  Receive Date: 20040504
  Receipt Date: 20040419
  Transmission Date: 20050107
  Serious: Yes (Hospitalization, Disabling)
  Sender: FDA-Public Use
  Company Number: WAES 0309USA00944

PATIENT
  Age: 74 Year
  Sex: Female

DRUGS (10)
  1. ZOCOR [Suspect]
     Indication: HYPERLIPIDAEMIA
     Dosage: 5 MG/DAILY PO
     Route: 048
     Dates: start: 19960520
  2. ENALAPRIL MALEATE [Suspect]
     Indication: HYPERTENSION
     Dosage: 2 TABLET/DAILY
     Dates: start: 19960520, end: 20000514
  3. DILTIAZEM HYDROCHLORIDE [Concomitant]
  4. FAMOTIDINE [Concomitant]
  5. FLUVOXAMINE MALEATE [Concomitant]
  6. IRSOGLADINE MALEATE [Concomitant]
  7. ISOSORBIDE MONONITRATE [Concomitant]
  8. LOSARTAN POTASSIUM [Concomitant]
  9. RIBOFLAVIN TETRABUTYRATE [Concomitant]
  10. TICLOPIDINE HYDROCHLORIDE [Concomitant]

REACTIONS (3)
  - BODY TEMPERATURE DECREASED [None]
  - CARDIAC FAILURE CONGESTIVE [None]
  - INTERSTITIAL LUNG DISEASE [None]
